FAERS Safety Report 8036345-6 (Version None)
Quarter: 2012Q1

REPORT INFORMATION
  Report Type: 
  Country: None (occurrence: None)
  Receive Date: 20120111
  Receipt Date: 20111206
  Transmission Date: 20120608
  Serious: No
  Sender: FDA-Public Use
  Company Number: US-GLAXOSMITHKLINE-A0956916A

PATIENT
  Age: 78 Year
  Sex: Male

DRUGS (4)
  1. JALYN [Suspect]
     Indication: BENIGN PROSTATIC HYPERPLASIA
     Dosage: 1CAP SINGLE DOSE
     Route: 048
     Dates: start: 20111205
  2. NEXIUM [Concomitant]
  3. ALPRAZOLAM [Concomitant]
  4. EXFORGE [Concomitant]

REACTIONS (2)
  - RESPIRATION ABNORMAL [None]
  - HEADACHE [None]
